FAERS Safety Report 5658449-5 (Version None)
Quarter: 2008Q1

REPORT INFORMATION
  Report Type: 
  Country: None (occurrence: None)
  Receive Date: 20080310
  Receipt Date: 20070216
  Transmission Date: 20080703
  Serious: No
  Sender: FDA-Public Use
  Company Number: US-BAYER-200710535BCC

PATIENT
  Sex: Female
  Weight: 73 kg

DRUGS (5)
  1. ALEVE [Suspect]
     Indication: HEADACHE
     Dosage: UNIT DOSE: 220 MG
     Route: 048
  2. RED RICE YEAST [Concomitant]
  3. COQ10 [Concomitant]
  4. ANTIOXIDANTS [Concomitant]
  5. VITAMIN CAP [Concomitant]

REACTIONS (1)
  - DYSPEPSIA [None]
